FAERS Safety Report 9796249 (Version 3)
Quarter: 2014Q1

REPORT INFORMATION
  Report Type: Spontaneous
  Country: CA (occurrence: CA)
  Receive Date: 20140103
  Receipt Date: 20140116
  Transmission Date: 20141002
  Serious: Yes (Other)
  Sender: FDA-Public Use
  Company Number: CA-JNJFOC-20131213424

PATIENT
  Age: 50 Year
  Sex: Female

DRUGS (14)
  1. XARELTO [Suspect]
     Indication: THROMBOSIS
     Route: 048
     Dates: start: 20131128
  2. XARELTO [Suspect]
     Indication: THROMBOSIS
     Route: 048
     Dates: start: 20131014, end: 20131028
  3. XARELTO [Suspect]
     Indication: THROMBOSIS
     Route: 048
     Dates: start: 20131028, end: 20131128
  4. XARELTO [Suspect]
     Indication: EMBOLISM VENOUS
     Route: 048
     Dates: start: 20131028, end: 20131128
  5. XARELTO [Suspect]
     Indication: EMBOLISM VENOUS
     Route: 048
     Dates: start: 20131014, end: 20131028
  6. XARELTO [Suspect]
     Indication: EMBOLISM VENOUS
     Route: 048
     Dates: start: 20131128
  7. XARELTO [Suspect]
     Indication: PULMONARY EMBOLISM
     Route: 048
     Dates: start: 20131128
  8. XARELTO [Suspect]
     Indication: PULMONARY EMBOLISM
     Route: 048
     Dates: start: 20131028, end: 20131128
  9. XARELTO [Suspect]
     Indication: PULMONARY EMBOLISM
     Route: 048
     Dates: start: 20131014, end: 20131028
  10. MULTIPLE VITAMIN [Concomitant]
     Indication: PRODUCT USED FOR UNKNOWN INDICATION
     Route: 065
  11. IRON SUPPLEMENT [Concomitant]
     Route: 065
  12. OMEGA 3 [Concomitant]
     Route: 065
  13. CALCIUM [Concomitant]
     Route: 065
  14. VITAMIN D [Concomitant]
     Route: 065

REACTIONS (13)
  - Thrombosis [Unknown]
  - Malaise [Unknown]
  - Dizziness [Recovering/Resolving]
  - Headache [Recovering/Resolving]
  - Menorrhagia [Recovering/Resolving]
  - Abdominal pain [Recovering/Resolving]
  - Panic attack [Recovering/Resolving]
  - Incorrect dose administered [Unknown]
  - Hyperhidrosis [Unknown]
  - Thirst [Unknown]
  - Arthralgia [Unknown]
  - Arthralgia [Unknown]
  - Pain in extremity [Unknown]
